FAERS Safety Report 4725742-X (Version None)
Quarter: 2005Q3

REPORT INFORMATION
  Report Type: 
  Country: None (occurrence: None)
  Receive Date: 20050725
  Receipt Date: 20050713
  Transmission Date: 20060218
  Serious: Yes (Other)
  Sender: FDA-Public Use
  Company Number: 2005100710

PATIENT
  Age: 59 Year
  Sex: Female
  Weight: 49.8957 kg

DRUGS (1)
  1. ESTRING [Suspect]
     Indication: MENOPAUSAL SYMPTOMS
     Dosage: 2MG (2 MG, TRIMESTRAL), INTRAVENOUS
     Route: 042

REACTIONS (4)
  - IUCD COMPLICATION [None]
  - PAIN [None]
  - UTERINE POLYP [None]
  - VAGINAL DISORDER [None]
